FAERS Safety Report 20748693 (Version 1)
Quarter: 2022Q2

REPORT INFORMATION
  Report Type: Report from Study
  Country: BE (occurrence: BE)
  Receive Date: 20220426
  Receipt Date: 20220426
  Transmission Date: 20220721
  Serious: Yes (Life-Threatening)
  Sender: FDA-Public Use
  Company Number: BE-Symogen - AB-202000028

PATIENT

DRUGS (7)
  1. LEUKINE [Suspect]
     Active Substance: SARGRAMOSTIM
     Indication: Respiratory failure
     Dosage: 1 DOSE INHALED
     Route: 055
     Dates: start: 20200530
  2. LEUKINE [Suspect]
     Active Substance: SARGRAMOSTIM
     Indication: Respiratory failure
     Dosage: 125 MICROGRAM PER SQUARE METRE PER DAY
     Route: 042
     Dates: start: 20200531, end: 20200606
  3. PIPERACILLIN AND TAZOBACTAM [Concomitant]
     Active Substance: PIPERACILLIN SODIUM\TAZOBACTAM SODIUM
     Indication: Pneumonia
     Dosage: 4 G, INTRAVENOUSLY
     Route: 042
     Dates: start: 20200607, end: 20200608
  4. LEVOFLOXACIN [Concomitant]
     Active Substance: LEVOFLOXACIN
     Indication: Pneumonia
     Dosage: 500 MG IN 100 ML, INTRAVENOUSLY
     Route: 042
     Dates: start: 20200608, end: 20200611
  5. MEROPENEM [Concomitant]
     Active Substance: MEROPENEM
     Indication: Product used for unknown indication
     Dosage: 1 G, ONCE A DAY, INTRAVENOUSLY
     Route: 042
     Dates: start: 20200611, end: 20200616
  6. VANCOMYCIN [Concomitant]
     Active Substance: VANCOMYCIN
     Indication: Product used for unknown indication
     Dosage: AT VARIABLE DOSE, INTRAVENOUSLY
     Route: 042
     Dates: start: 20200611, end: 20200612
  7. SULFAMETHAXOL [Concomitant]
     Indication: Product used for unknown indication
     Dosage: 800 MG, THRICE A DAY, INTRAVENOUSLY
     Route: 042
     Dates: start: 20200612, end: 20200622

REACTIONS (1)
  - Pneumonia [Recovered/Resolved]

NARRATIVE: CASE EVENT DATE: 20200605
